FAERS Safety Report 9799194 (Version 2)
Quarter: 2014Q1

REPORT INFORMATION
  Report Type: Spontaneous
  Country: US (occurrence: US)
  Receive Date: 20140106
  Receipt Date: 20140106
  Transmission Date: 20141002
  Serious: Yes (Disabling)
  Sender: FDA-Public Use
  Company Number: US-GILEAD-2010-0034142

PATIENT
  Age: 65 Year
  Sex: Female
  Weight: 86.18 kg

DRUGS (7)
  1. LETAIRIS [Suspect]
     Indication: PULMONARY ARTERIAL HYPERTENSION
     Route: 048
     Dates: start: 20101125
  2. LOPRESSOR [Concomitant]
  3. DIOVAN HCT [Concomitant]
  4. ASA [Concomitant]
  5. ZOCOR [Concomitant]
  6. SYMBICORT [Concomitant]
  7. EVISTA [Concomitant]

REACTIONS (5)
  - Dyspnoea at rest [Recovered/Resolved]
  - Oedema peripheral [Recovered/Resolved]
  - Oropharyngeal pain [Recovered/Resolved]
  - Nausea [Recovered/Resolved]
  - Dyspnoea exertional [Recovered/Resolved]
